FAERS Safety Report 12250527 (Version 1)
Quarter: 2016Q2

REPORT INFORMATION
  Report Type: Report from Study
  Country: US (occurrence: US)
  Receive Date: 20160408
  Receipt Date: 20160408
  Transmission Date: 20160815
  Serious: Yes (Hospitalization, Disabling, Other)
  Sender: FDA-Public Use
  Company Number: US-TAKEDA-2014TUS000653

PATIENT

DRUGS (11)
  1. PIOGLITAZONE. [Suspect]
     Active Substance: PIOGLITAZONE
     Indication: CARDIOVASCULAR EVENT PROPHYLAXIS
     Dosage: 15 MG, QD
     Route: 048
     Dates: start: 20110725, end: 20110822
  2. PIOGLITAZONE. [Suspect]
     Active Substance: PIOGLITAZONE
     Dosage: 45 MG, QD
     Route: 048
     Dates: start: 20110921, end: 20130716
  3. PRADAXA [Concomitant]
     Active Substance: DABIGATRAN ETEXILATE MESYLATE
  4. TOPROL XL [Concomitant]
     Active Substance: METOPROLOL SUCCINATE
     Dosage: 50 MG, QD
     Route: 048
  5. PIOGLITAZONE. [Suspect]
     Active Substance: PIOGLITAZONE
     Dosage: 30 MG, QD
     Route: 048
     Dates: start: 20110823, end: 20110920
  6. ASA [Concomitant]
     Active Substance: ASPIRIN
     Dosage: 81 MG, QD
     Route: 048
  7. WARFARIN [Concomitant]
     Active Substance: WARFARIN
     Dosage: 5 MG, QD
     Route: 048
  8. LISINOPRIL. [Concomitant]
     Active Substance: LISINOPRIL
     Dosage: 5 MG, QD
     Route: 048
  9. METHIMAZOLE. [Concomitant]
     Active Substance: METHIMAZOLE
     Dosage: 10 MG, QD
     Route: 048
  10. LASIX [Concomitant]
     Active Substance: FUROSEMIDE
     Dosage: 20 MG, QD
     Route: 048
     Dates: start: 201212
  11. CARDIOVASCULAR SYSTEM DRUGS [Concomitant]
     Active Substance: UNSPECIFIED INGREDIENT

REACTIONS (5)
  - Oedema peripheral [Not Recovered/Not Resolved]
  - Atrial fibrillation [Not Recovered/Not Resolved]
  - Cardiac failure congestive [Not Recovered/Not Resolved]
  - Weight increased [Not Recovered/Not Resolved]
  - Basedow^s disease [Not Recovered/Not Resolved]

NARRATIVE: CASE EVENT DATE: 20120715
